FAERS Safety Report 23972292 (Version 1)
Quarter: 2024Q2

REPORT INFORMATION
  Report Type: Report from Study
  Country: BE (occurrence: BE)
  Receive Date: 20240613
  Receipt Date: 20240613
  Transmission Date: 20240716
  Serious: Yes (Other)
  Sender: FDA-Public Use
  Company Number: BE-ABBVIE-5797747

PATIENT
  Sex: Male

DRUGS (6)
  1. CARBIDOPA\LEVODOPA [Suspect]
     Active Substance: CARBIDOPA\LEVODOPA
     Indication: Parkinson^s disease
     Dosage: MD:4.5ML, CD:2.6ML/H, ED:2.70ML DURING 16HOUR
     Route: 050
     Dates: start: 20231212, end: 20240507
  2. CARBIDOPA\LEVODOPA [Suspect]
     Active Substance: CARBIDOPA\LEVODOPA
     Route: 050
     Dates: start: 20220809
  3. CARBIDOPA\LEVODOPA [Suspect]
     Active Substance: CARBIDOPA\LEVODOPA
     Dosage: MD:4.5ML, CD:2.5ML/H, ED:2.80ML DURING 16HOUR
     Route: 050
     Dates: start: 20240507, end: 20240610
  4. PRAMIPEXOLE [Concomitant]
     Active Substance: PRAMIPEXOLE\PRAMIPEXOLE DIHYDROCHLORIDE
     Indication: Parkinson^s disease
  5. BENSERAZIDE\LEVODOPA [Concomitant]
     Active Substance: BENSERAZIDE\LEVODOPA
     Indication: Parkinson^s disease
     Dosage: 0.5 UNKNOWN 250 UNKNOWN, AT WAKE UP, AT12.00, 15.00, 18.00, 21.00
  6. COMTAN [Concomitant]
     Active Substance: ENTACAPONE
     Indication: Parkinson^s disease
     Dosage: 4 TIMES A DAY WITH EACH DOSE OF PROLOPA

REACTIONS (2)
  - Respiratory failure [Unknown]
  - Urinary tract infection [Unknown]
